FAERS Safety Report 6055698-1 (Version None)
Quarter: 2009Q1

REPORT INFORMATION
  Report Type: 
  Country: None (occurrence: None)
  Receive Date: 20090126
  Receipt Date: 20090119
  Transmission Date: 20090719
  Serious: Yes (Death)
  Sender: FDA-Public Use
  Company Number: CHNY2009DE00612

PATIENT

DRUGS (2)
  1. TAVEGYL           (CLEMASTINE HYDROGEN FUMARATE) TABLET [Suspect]
     Dosage: ORAL
     Route: 048
  2. ZOMETA [Concomitant]

REACTIONS (1)
  - DEATH [None]
